FAERS Safety Report 10177962 (Version 1)
Quarter: 2014Q2

REPORT INFORMATION
  Report Type: Spontaneous
  Country: CH (occurrence: CH)
  Receive Date: 20140516
  Receipt Date: 20140516
  Transmission Date: 20141212
  Serious: Yes (Hospitalization, Other)
  Sender: FDA-Public Use
  Company Number: CH-RB-067292-14

PATIENT
  Age: 88 Year
  Sex: Male

DRUGS (15)
  1. TEMGESIC [Suspect]
     Indication: PRODUCT USED FOR UNKNOWN INDICATION
     Dosage: THE PATIENT WAS TAKING 0.2 MG UP TO 4 TIMES DAILY WHEN NEEDED; 0.2 MG TWICE DAILY
     Route: 048
     Dates: start: 20140221, end: 20140223
  2. TEMGESIC [Suspect]
     Dosage: 0.2 MG ONCE DAILY IN THE MORNING; THE PATIENT WAS TAKING 0.2 MG UP TO 4 TIMES DAILY, WHEN NEEDED
     Route: 048
     Dates: start: 20140224, end: 20140226
  3. IMODIUM [Suspect]
     Indication: PRODUCT USED FOR UNKNOWN INDICATION
     Route: 048
     Dates: start: 20131126
  4. TEMESTA [Suspect]
     Indication: PRODUCT USED FOR UNKNOWN INDICATION
     Dosage: 1 MG THRICE DAILY
     Route: 048
     Dates: start: 20140221, end: 20140226
  5. CITALOPRAM [Suspect]
     Indication: PRODUCT USED FOR UNKNOWN INDICATION
     Dosage: LONG TERM USE; CHRONIC TREATMENT
     Route: 048
  6. DISTRANEURIN [Suspect]
     Indication: PRODUCT USED FOR UNKNOWN INDICATION
     Dosage: LONG TERM USE; CHRONIC TREATMENT
     Route: 048
  7. QUETIAPINE [Suspect]
     Indication: PRODUCT USED FOR UNKNOWN INDICATION
     Dosage: LONG TERM USE; CHRONIC TREATMENT
     Route: 048
  8. REMERON [Suspect]
     Indication: PRODUCT USED FOR UNKNOWN INDICATION
     Dosage: LONG TERM USE; CHRONIC TREATMENT
     Route: 048
  9. SINTROM [Concomitant]
     Indication: PRODUCT USED FOR UNKNOWN INDICATION
     Dosage: DOSING DETAILS UNKNOWN; LONG TERM USE; CHRONIC TREATMENT ACCORDING TO INR (2-3)
     Route: 048
  10. LOSARTAN [Concomitant]
     Indication: PRODUCT USED FOR UNKNOWN INDICATION
     Dosage: LONG TERM USE; CHRONIC TREATMENT
     Route: 048
  11. DAFALGAN [Concomitant]
     Indication: PRODUCT USED FOR UNKNOWN INDICATION
     Dosage: 1000 MG THRICE DAILY
     Route: 048
     Dates: start: 20140221
  12. FRESUBIN ENERGY [Concomitant]
     Indication: PRODUCT USED FOR UNKNOWN INDICATION
     Dosage: DOSING DETAILS UNKNOWN; 1 BOX ONCE DAILY IN THE AFTERNOON
     Route: 048
     Dates: start: 20140221
  13. TRANSIPEG [Concomitant]
     Indication: PRODUCT USED FOR UNKNOWN INDICATION
     Dosage: DOSING DETAILS UNKNOWN; 1 SACHET IN THE MORNING
     Route: 048
     Dates: start: 20140221
  14. TOREM [Concomitant]
     Indication: PRODUCT USED FOR UNKNOWN INDICATION
     Route: 048
  15. BELOC [Concomitant]
     Indication: PRODUCT USED FOR UNKNOWN INDICATION
     Route: 048
     Dates: start: 20140221

REACTIONS (1)
  - Altered state of consciousness [Recovered/Resolved]
